FAERS Safety Report 23062459 (Version 1)
Quarter: 2023Q4

REPORT INFORMATION
  Report Type: Spontaneous
  Country: US (occurrence: US)
  Receive Date: 20231013
  Receipt Date: 20231013
  Transmission Date: 20240110
  Serious: Yes (Hospitalization, Other)
  Sender: FDA-Public Use
  Company Number: US-APOTEX-2023AP015168

PATIENT
  Age: 40 Year
  Sex: Female

DRUGS (1)
  1. FENTANYL [Suspect]
     Active Substance: FENTANYL
     Indication: Product used for unknown indication
     Dosage: UNK
     Route: 042

REACTIONS (5)
  - Pain in extremity [Unknown]
  - Cellulitis [Unknown]
  - Drug withdrawal syndrome [Unknown]
  - Drug abuse [Unknown]
  - Intentional product misuse [Unknown]
